FAERS Safety Report 9090901 (Version 1)
Quarter: 2013Q1

REPORT INFORMATION
  Report Type: Report from Study
  Country: JP (occurrence: JP)
  Receive Date: 20130201
  Receipt Date: 20130201
  Transmission Date: 20140127
  Serious: Yes (Other)
  Sender: FDA-Public Use
  Company Number: JP-009507513-1207JPN007942

PATIENT
  Age: 48 Year
  Sex: Male
  Weight: 79 kg

DRUGS (11)
  1. PEGINTRON [Suspect]
     Indication: CHRONIC HEPATITIS C
     Dosage: 1.5MICROGRAM/KG/WEEK
     Route: 058
     Dates: start: 20120409
  2. REBETOL [Suspect]
     Indication: CHRONIC HEPATITIS C
     Dosage: 800 MG, QD
     Route: 048
     Dates: start: 20120409, end: 20120430
  3. REBETOL [Suspect]
     Dosage: 600 MG, QD
     Route: 048
     Dates: start: 20120501, end: 20120507
  4. REBETOL [Suspect]
     Dosage: 200 MG, QD
     Route: 048
     Dates: start: 20120508, end: 20120625
  5. REBETOL [Suspect]
     Dosage: 400 MG, QD
     Route: 048
     Dates: start: 20120626, end: 20120702
  6. TELAVIC [Suspect]
     Indication: CHRONIC HEPATITIS C
     Dosage: 2250 MG, QD
     Route: 048
     Dates: start: 20120409, end: 20120619
  7. XYZAL [Concomitant]
     Route: 048
     Dates: start: 20120605, end: 20120612
  8. ANTEBATE [Concomitant]
     Route: 051
     Dates: start: 20120605
  9. CELESTAMINE (BETAMETHASONE (+) DEXCHLORPHENIRAMINE MALEATE) [Concomitant]
     Route: 048
     Dates: start: 20120612
  10. PARIET [Concomitant]
     Indication: PROPHYLAXIS
     Dosage: FORMULATION:POR,10 MG,QD
     Route: 048
     Dates: start: 20120515
  11. MUCOSTA [Concomitant]
     Indication: PROPHYLAXIS
     Dosage: 300 MG, QD
     Route: 048
     Dates: start: 20120515

REACTIONS (1)
  - Rash generalised [Recovered/Resolved]
